FAERS Safety Report 20206581 (Version 1)
Quarter: 2021Q4

REPORT INFORMATION
  Report Type: Spontaneous
  Country: AT (occurrence: AT)
  Receive Date: 20211220
  Receipt Date: 20211220
  Transmission Date: 20220303
  Serious: Yes (Other)
  Sender: FDA-Public Use
  Company Number: AT-MYLANLABS-2021M1093669

PATIENT
  Age: 69 Year
  Sex: Female

DRUGS (5)
  1. ADALIMUMAB [Suspect]
     Active Substance: ADALIMUMAB
     Indication: Psoriasis
     Dosage: UNK
  2. METHOTREXATE [Concomitant]
     Active Substance: METHOTREXATE
  3. NEOTIGASON [Concomitant]
     Active Substance: ACITRETIN
     Dosage: UNK
  4. ETANERCEPT [Concomitant]
     Active Substance: ETANERCEPT
  5. EFALIZUMAB [Concomitant]
     Active Substance: EFALIZUMAB
     Dosage: UNK

REACTIONS (2)
  - Osteomyelitis [Unknown]
  - Head discomfort [Unknown]
